FAERS Safety Report 4699275-3 (Version None)
Quarter: 2005Q2

REPORT INFORMATION
  Report Type: 
  Country: None (occurrence: None)
  Receive Date: 20050624
  Receipt Date: 20050314
  Transmission Date: 20051028
  Serious: Yes (Other)
  Sender: FDA-Public Use
  Company Number: US-MERCK-0503USA02917

PATIENT
  Age: 62 Year
  Sex: Female
  Weight: 84 kg

DRUGS (9)
  1. VIOXX [Suspect]
     Indication: SYSTEMIC LUPUS ERYTHEMATOSUS
     Route: 048
     Dates: start: 19991001, end: 20040901
  2. DARVOCET-N 100 [Concomitant]
     Indication: PAIN
     Route: 065
  3. CIMETIDINE [Concomitant]
     Indication: GASTRIC ULCER
     Route: 065
  4. ALLEGRA [Concomitant]
     Indication: SEASONAL ALLERGY
     Route: 065
  5. DOXEPIN HYDROCHLORIDE [Concomitant]
     Route: 065
  6. NEURONTIN [Concomitant]
     Indication: MUSCLE RELAXANT THERAPY
     Route: 065
  7. SKELAXIN [Concomitant]
     Indication: MUSCLE RELAXANT THERAPY
     Route: 065
  8. METHOTREXATE [Concomitant]
     Indication: CHEMOTHERAPY
     Route: 065
     Dates: start: 19990101
  9. VIOXX [Suspect]
     Indication: ARTHRALGIA
     Route: 048
     Dates: start: 19991001, end: 20040901

REACTIONS (4)
  - AMNESIA [None]
  - INTESTINAL FUNCTIONAL DISORDER [None]
  - MYOCARDIAL INFARCTION [None]
  - RENAL DISORDER [None]
